FAERS Safety Report 9644315 (Version 3)
Quarter: 2013Q4

REPORT INFORMATION
  Report Type: Spontaneous
  Country: JP (occurrence: JP)
  Receive Date: 20131025
  Receipt Date: 20131029
  Transmission Date: 20140711
  Serious: Yes (Life-Threatening, Other)
  Sender: FDA-Public Use
  Company Number: JP-009507513-1309JPN013978

PATIENT
  Age: 76 Year
  Sex: Male
  Weight: 79 kg

DRUGS (9)
  1. BRIDION [Suspect]
     Dosage: DAILY DOSAGE UNKNOWN
     Route: 042
     Dates: start: 20130722, end: 20130722
  2. ESLAX INTRAVENOUS 25MG/2.5ML [Suspect]
     Dosage: 40 G, DAILY
     Route: 042
     Dates: start: 20130722
  3. ULTIVA [Suspect]
     Dosage: 0.3 G, DAILY
     Route: 042
     Dates: start: 20130722
  4. FENTANYL CITRATE [Suspect]
     Dosage: 25 MICROGRAM, QID
     Route: 042
     Dates: start: 20130722
  5. PROPOFOL [Suspect]
     Dosage: 250 G DAILY
     Route: 042
     Dates: start: 20130722
  6. PROPOFOL [Suspect]
     Dosage: 80 MG, UNK
     Route: 042
     Dates: start: 20130722
  7. ONOACT [Suspect]
     Dosage: 10 G DAILY
     Route: 042
     Dates: start: 20130722
  8. INDERAL [Suspect]
     Dosage: 0.4 G, DAILY
     Route: 042
     Dates: start: 20130722
  9. NITROUS OXIDE [Concomitant]
     Dosage: STRENGTH: INS; ROUTE: INHALATION; 100L, DAILY
     Route: 055

REACTIONS (1)
  - Anaphylactic shock [Recovered/Resolved]
